FAERS Safety Report 16066236 (Version 2)
Quarter: 2019Q2

REPORT INFORMATION
  Report Type: Spontaneous
  Country: SK (occurrence: SK)
  Receive Date: 20190313
  Receipt Date: 20190424
  Transmission Date: 20190711
  Serious: Yes (Other)
  Sender: FDA-Public Use
  Company Number: SK-CELGENEUS-SVK-20190302701

PATIENT
  Age: 70 Year
  Sex: Female

DRUGS (1)
  1. OTEZLA [Suspect]
     Active Substance: APREMILAST
     Indication: PSORIASIS
     Route: 048
     Dates: start: 201806

REACTIONS (3)
  - Psoriasis [Unknown]
  - Pancreatitis acute [Recovered/Resolved]
  - Stress [Unknown]
